FAERS Safety Report 8011249-3 (Version None)
Quarter: 2011Q4

REPORT INFORMATION
  Report Type: 
  Country: None (occurrence: None)
  Receive Date: 20111227
  Receipt Date: 20111227
  Transmission Date: 20120403
  Serious: Yes (Other)
  Sender: FDA-Public Use
  Company Number: None

PATIENT
  Age: 50 Year
  Sex: Male
  Weight: 90.718 kg

DRUGS (2)
  1. FINISTRIDE [Concomitant]
  2. PROPECIA [Suspect]
     Indication: ALOPECIA
     Dates: start: 20050101, end: 20100101

REACTIONS (6)
  - BLINDNESS [None]
  - LOSS OF LIBIDO [None]
  - SPERM CONCENTRATION ZERO [None]
  - ERECTILE DYSFUNCTION [None]
  - AMNESIA [None]
  - DEAFNESS UNILATERAL [None]
